FAERS Safety Report 9675584 (Version 3)
Quarter: 2013Q4

REPORT INFORMATION
  Report Type: Spontaneous
  Country: US (occurrence: US)
  Receive Date: 20131107
  Receipt Date: 20131223
  Transmission Date: 20140711
  Serious: Yes (Other)
  Sender: FDA-Public Use
  Company Number: US-PFIZER INC-2013314604

PATIENT
  Age: 57 Year
  Sex: Female
  Weight: 61.2 kg

DRUGS (8)
  1. PREMARIN [Suspect]
     Indication: VULVOVAGINAL DRYNESS
     Dosage: UNK
     Route: 067
     Dates: start: 2012
  2. PREMARIN [Interacting]
     Dosage: UNK
     Route: 067
     Dates: start: 201307
  3. TERBINAFINE [Interacting]
     Dosage: 250 MG, 1X/DAY
     Route: 048
     Dates: start: 20130913
  4. BABY ASPIRIN [Concomitant]
     Dosage: UNK, 1X/DAY
  5. VITAMIN D [Concomitant]
     Dosage: UNK
  6. CALCIUM [Concomitant]
     Dosage: UNK
  7. CO-Q-10 [Concomitant]
     Dosage: UNK
  8. OMEGA 3 [Concomitant]
     Dosage: UNK

REACTIONS (3)
  - Renal neoplasm [Unknown]
  - Drug interaction [Unknown]
  - Vaginal haemorrhage [Unknown]
